FAERS Safety Report 10405069 (Version 4)
Quarter: 2015Q1

REPORT INFORMATION
  Report Type: Spontaneous
  Country: JP (occurrence: JP)
  Receive Date: 20140825
  Receipt Date: 20150303
  Transmission Date: 20150720
  Serious: Yes (Death, Hospitalization)
  Sender: FDA-Public Use
  Company Number: JP-BRISTOL-MYERS SQUIBB COMPANY-21315304

PATIENT
  Age: 81 Year
  Sex: Female
  Weight: 39 kg

DRUGS (1)
  1. ERBITUX [Suspect]
     Active Substance: CETUXIMAB
     Indication: BONE CANCER
     Dosage: 480 MG, QWK
     Route: 041
     Dates: start: 20140408

REACTIONS (4)
  - Cardiac failure [Fatal]
  - Hypoalbuminaemia [Not Recovered/Not Resolved]
  - Pneumonia [Not Recovered/Not Resolved]
  - Dermatitis [Recovering/Resolving]

NARRATIVE: CASE EVENT DATE: 20140606
